FAERS Safety Report 20764675 (Version 6)
Quarter: 2022Q3

REPORT INFORMATION
  Report Type: Report from Study
  Country: CA (occurrence: CA)
  Receive Date: 20220428
  Receipt Date: 20220906
  Transmission Date: 20221026
  Serious: Yes (Hospitalization, Other)
  Sender: FDA-Public Use
  Company Number: CA-BRISTOL-MYERS SQUIBB COMPANY-2022-024733

PATIENT
  Age: 74 Year
  Sex: Male
  Weight: 79 kg

DRUGS (2)
  1. OPDIVO [Suspect]
     Active Substance: NIVOLUMAB
     Indication: Cholangiocarcinoma
     Route: 042
     Dates: start: 20220325
  2. OPDIVO [Suspect]
     Active Substance: NIVOLUMAB
     Indication: Adenocarcinoma
     Route: 042
     Dates: start: 20220327

REACTIONS (14)
  - Pyrexia [Unknown]
  - Stoma site haemorrhage [Unknown]
  - Abdominal discomfort [Unknown]
  - Sleep disorder [Unknown]
  - Biliary tract disorder [Unknown]
  - Pain [Unknown]
  - Fatigue [Unknown]
  - Somnolence [Unknown]
  - Dyspnoea [Unknown]
  - Intentional product use issue [Unknown]
  - Nausea [Unknown]
  - Depression [Unknown]
  - Anxiety [Unknown]
  - Appetite disorder [Unknown]

NARRATIVE: CASE EVENT DATE: 20220817
